FAERS Safety Report 12604623 (Version 1)
Quarter: 2016Q3

REPORT INFORMATION
  Report Type: Spontaneous
  Country: BR (occurrence: BR)
  Receive Date: 20160728
  Receipt Date: 20160728
  Transmission Date: 20161109
  Serious: Yes (Other)
  Sender: FDA-Public Use
  Company Number: BR-BAYER-2016-143327

PATIENT
  Age: 77 Year
  Sex: Female

DRUGS (12)
  1. TEICOPLANIN [Concomitant]
     Active Substance: TEICOPLANIN
     Dosage: 400 MG, QD
     Dates: end: 20160530
  2. RIFAMPICIN [Concomitant]
     Active Substance: RIFAMPIN
     Dosage: 300 MG, BID
     Dates: start: 20160530, end: 20160620
  3. TIGECYCLINE. [Concomitant]
     Active Substance: TIGECYCLINE
     Indication: ENTEROBACTER INFECTION
     Dosage: 50 MG, BID
     Route: 042
     Dates: start: 20160625
  4. CIPRO [Suspect]
     Active Substance: CIPROFLOXACIN HYDROCHLORIDE
     Dosage: 400 MG, BID
     Route: 042
     Dates: start: 20160615, end: 20160616
  5. LINEZOLID. [Concomitant]
     Active Substance: LINEZOLID
     Indication: ENTEROBACTER INFECTION
     Dosage: 600 MG, QD
     Dates: end: 20160629
  6. MEROPENEM. [Concomitant]
     Active Substance: MEROPENEM
     Dosage: 1 G, TID
     Dates: start: 20160613, end: 20160615
  7. TEICOPLANIN [Concomitant]
     Active Substance: TEICOPLANIN
     Dosage: 400 MG, BID
     Dates: start: 20160519, end: 20160530
  8. CEFTAZIDIME. [Concomitant]
     Active Substance: CEFTAZIDIME
     Dosage: 2 G, TID
     Dates: start: 20160519, end: 20160530
  9. VANCOMICINA [Concomitant]
     Active Substance: VANCOMYCIN
     Dosage: 1 G, BID
     Dates: start: 20160530, end: 20160620
  10. AMICACINA [Concomitant]
     Active Substance: AMIKACIN
     Dosage: 500 MG, BID
     Dates: start: 20160624, end: 20160625
  11. LINEZOLID. [Concomitant]
     Active Substance: LINEZOLID
     Indication: ENTEROBACTER INFECTION
     Dosage: 600 MG, BID
     Route: 042
     Dates: start: 20160620
  12. PIPERACILLIN AND TAZOBACTAM [Concomitant]
     Active Substance: PIPERACILLIN SODIUM\TAZOBACTAM SODIUM
     Dosage: 4.5 G, TID
     Dates: start: 20160615, end: 20160624

REACTIONS (7)
  - Hypertension [Recovered/Resolved]
  - Pruritus generalised [Recovered/Resolved]
  - Bronchospasm [Recovered/Resolved]
  - Malaise [Recovered/Resolved]
  - Wheezing [Recovered/Resolved]
  - Hypersensitivity [Recovered/Resolved]
  - Hypertensive crisis [Recovered/Resolved]

NARRATIVE: CASE EVENT DATE: 20160615
